FAERS Safety Report 6808723-1 (Version None)
Quarter: 2010Q2

REPORT INFORMATION
  Report Type: 
  Country: None (occurrence: None)
  Receive Date: 20100629
  Receipt Date: 20090917
  Transmission Date: 20101027
  Serious: No
  Sender: FDA-Public Use
  Company Number: US-PFIZER INC-2009251016

PATIENT
  Sex: Female
  Weight: 49.887 kg

DRUGS (6)
  1. ARTHROTEC [Suspect]
     Indication: ARTHRITIS
     Dosage: FREQUENCY: 2X/DAY, EVERY DAY;
     Dates: start: 20080101
  2. ARTHROTEC [Suspect]
     Indication: SCOLIOSIS
  3. ARTHROTEC [Suspect]
     Indication: INTERVERTEBRAL DISC DISORDER
  4. LISINOPRIL [Concomitant]
     Dosage: UNK
  5. FOSAMAX [Concomitant]
     Dosage: UNK
  6. CIMETIDINE [Concomitant]
     Dosage: UNK

REACTIONS (6)
  - BLOOD CHOLESTEROL INCREASED [None]
  - DIARRHOEA [None]
  - DISCOMFORT [None]
  - DRUG INEFFECTIVE [None]
  - FLATULENCE [None]
  - NAUSEA [None]
